FAERS Safety Report 19381965 (Version 2)
Quarter: 2021Q2

REPORT INFORMATION
  Report Type: Report from Study
  Country: None (occurrence: CA)
  Receive Date: 20210607
  Receipt Date: 20210610
  Transmission Date: 20210717
  Serious: Yes (Other)
  Sender: FDA-Public Use
  Company Number: CA-ABBVIE-21K-028-3929839-00

PATIENT
  Sex: Female

DRUGS (4)
  1. RINVOQ [Suspect]
     Active Substance: UPADACITINIB
     Indication: RHEUMATOID ARTHRITIS
     Route: 048
     Dates: start: 20200226
  2. RINVOQ [Suspect]
     Active Substance: UPADACITINIB
     Route: 048
     Dates: start: 202101
  3. PREDNISONE. [Suspect]
     Active Substance: PREDNISONE
     Route: 065
  4. PREDNISONE. [Suspect]
     Active Substance: PREDNISONE
     Indication: PRODUCT USED FOR UNKNOWN INDICATION
     Route: 065

REACTIONS (10)
  - Sleep disorder [Unknown]
  - Rheumatoid arthritis [Unknown]
  - Gait inability [Unknown]
  - Synovitis [Unknown]
  - Arthralgia [Unknown]
  - Blood pressure increased [Unknown]
  - Drug ineffective [Unknown]
  - Complication associated with device [Unknown]
  - Surgery [Unknown]
  - Weight increased [Unknown]

NARRATIVE: CASE EVENT DATE: 2021
